FAERS Safety Report 10521929 (Version 1)
Quarter: 2014Q4

REPORT INFORMATION
  Report Type: Spontaneous
  Country: US (occurrence: US)
  Receive Date: 20141016
  Receipt Date: 20141016
  Transmission Date: 20150528
  Serious: Yes (Other)
  Sender: FDA-Public Use
  Company Number: US-JNJFOC-20141003926

PATIENT
  Age: 54 Year
  Sex: Male
  Weight: 81.65 kg

DRUGS (1)
  1. BENGAY ULTRA STRENGTH [Suspect]
     Active Substance: METHYL SALICYLATE
     Indication: ARTHRALGIA
     Dosage: 1 PATCH
     Route: 061

REACTIONS (5)
  - Application site erosion [Unknown]
  - Gait disturbance [Unknown]
  - Application site burn [Not Recovered/Not Resolved]
  - Application site swelling [Unknown]
  - Application site discolouration [Unknown]
